FAERS Safety Report 8118770-8 (Version None)
Quarter: 2012Q1

REPORT INFORMATION
  Report Type: 
  Country: None (occurrence: None)
  Receive Date: 20120202
  Receipt Date: 20120125
  Transmission Date: 20120608
  Serious: Yes (Death)
  Sender: FDA-Public Use
  Company Number: DKLU1076369

PATIENT
  Age: 18 Year
  Sex: Male
  Weight: 100 kg

DRUGS (2)
  1. VALPROATE SODIUM [Suspect]
     Indication: EPILEPSY
     Dosage: 6 DF DOSAGE FORM, 1 IN 1 D, ORAL
     Route: 048
  2. ONFI [Suspect]
     Indication: EPILEPSY
     Dosage: 3 DF DOSAGE FORM, 1 IN 1 D, ORAL
     Route: 048

REACTIONS (1)
  - ANEURYSM [None]
